FAERS Safety Report 21683563 (Version 2)
Quarter: 2022Q4

REPORT INFORMATION
  Report Type: Report from Study
  Country: US (occurrence: US)
  Receive Date: 20221205
  Receipt Date: 20221228
  Transmission Date: 20230113
  Serious: Yes (Other)
  Sender: FDA-Public Use
  Company Number: US-ABBVIE-4223740

PATIENT
  Age: 78 Year
  Sex: Male
  Weight: 63 kg

DRUGS (7)
  1. VENCLEXTA [Suspect]
     Active Substance: VENETOCLAX
     Indication: Chronic lymphocytic leukaemia
     Dosage: LAST ADMIN DATE WAS 2022
     Route: 048
     Dates: start: 20220224
  2. VENCLEXTA [Suspect]
     Active Substance: VENETOCLAX
     Indication: Chronic lymphocytic leukaemia
     Route: 048
     Dates: start: 20221208
  3. VENCLEXTA [Suspect]
     Active Substance: VENETOCLAX
     Indication: Chronic lymphocytic leukaemia
     Dosage: LAST ADMIN DATE FEB 2022.
     Route: 048
     Dates: start: 202202
  4. ZINC [Concomitant]
     Active Substance: ZINC
     Indication: Product used for unknown indication
  5. LYSINE [Concomitant]
     Active Substance: LYSINE
     Indication: Product used for unknown indication
  6. MAGNESIUM [Concomitant]
     Active Substance: MAGNESIUM
     Indication: Product used for unknown indication
  7. DIMETHYL SULFONE [Concomitant]
     Active Substance: DIMETHYL SULFONE
     Indication: Product used for unknown indication

REACTIONS (6)
  - Chronic lymphocytic leukaemia recurrent [Not Recovered/Not Resolved]
  - COVID-19 [Recovered/Resolved]
  - Abdominal pain upper [Recovered/Resolved]
  - Musculoskeletal discomfort [Unknown]
  - Neck pain [Not Recovered/Not Resolved]
  - Muscle spasms [Recovered/Resolved]

NARRATIVE: CASE EVENT DATE: 20220301
